FAERS Safety Report 7535544-7 (Version None)
Quarter: 2011Q2

REPORT INFORMATION
  Report Type: 
  Country: None (occurrence: None)
  Receive Date: 20110601
  Receipt Date: 20110526
  Transmission Date: 20111010
  Serious: Yes (Life-Threatening, Hospitalization)
  Sender: FDA-Public Use
  Company Number: 2011SP024196

PATIENT
  Age: 42 Year
  Sex: Female

DRUGS (10)
  1. IMOVANE (ZOPICLONE) [Suspect]
     Indication: MAJOR DEPRESSION
     Dosage: 16 DF;ONCE
     Dates: start: 20101213
  2. IMOVANE (ZOPICLONE) [Suspect]
     Indication: MAJOR DEPRESSION
     Dosage: 16 DF;ONCE
     Dates: start: 20101210
  3. MIRTAZAPINE [Suspect]
     Indication: MAJOR DEPRESSION
     Dosage: 900 MG;ONCE
     Dates: start: 20101213
  4. MIRTAZAPINE [Suspect]
     Indication: MAJOR DEPRESSION
     Dosage: 900 MG;ONCE
     Dates: start: 20101210
  5. OXAZEPAM [Suspect]
     Indication: MAJOR DEPRESSION
     Dosage: PO ; 18 DF;ONCE;PO
     Route: 048
     Dates: start: 20101210
  6. OXAZEPAM [Suspect]
     Indication: MAJOR DEPRESSION
     Dosage: PO ; 18 DF;ONCE;PO
     Route: 048
     Dates: start: 20101213
  7. TERCIAN (CYAMEMAZINE) [Suspect]
     Indication: MAJOR DEPRESSION
     Dosage: 15 DF;ONCE;PO
     Route: 048
     Dates: start: 20101213
  8. TERCIAN (CYAMEMAZINE) [Suspect]
     Indication: MAJOR DEPRESSION
     Dosage: 15 DF;ONCE;PO
     Route: 048
     Dates: start: 20101210
  9. MEPRONIZINE (OTHER MFR) (MEPRONIZINE /00789201/ [Suspect]
     Indication: MAJOR DEPRESSION
     Dosage: 50 DF;ONCE;PO
     Route: 048
     Dates: start: 20101213
  10. MEPRONIZINE (OTHER MFR) (MEPRONIZINE /00789201/ [Suspect]
     Indication: MAJOR DEPRESSION
     Dosage: 50 DF;ONCE;PO
     Route: 048
     Dates: start: 20101210

REACTIONS (5)
  - TOXICITY TO VARIOUS AGENTS [None]
  - INCORRECT DOSE ADMINISTERED [None]
  - ASPIRATION [None]
  - COMA [None]
  - LUNG DISORDER [None]
